FAERS Safety Report 24853983 (Version 1)
Quarter: 2025Q1

REPORT INFORMATION
  Report Type: Report from Study
  Country: TW (occurrence: TW)
  Receive Date: 20250117
  Receipt Date: 20250117
  Transmission Date: 20250409
  Serious: Yes (Other)
  Sender: JOHNSON AND JOHNSON
  Company Number: TW-JNJFOC-20250134301

PATIENT

DRUGS (6)
  1. REMICADE [Suspect]
     Active Substance: INFLIXIMAB
     Indication: Crohn^s disease
     Route: 041
  2. REMICADE [Suspect]
     Active Substance: INFLIXIMAB
     Indication: Colitis ulcerative
     Dosage: IFX INVOLVED A DOSE OF 5 MG/KG AT WEEKS O, 2, AND 6, THEN CONTINUED EVERY 8 WEEKS. AN INCREASE IN TH
     Route: 041
  3. STELARA [Suspect]
     Active Substance: USTEKINUMAB
     Indication: Crohn^s disease
     Dosage: . FOR UST, THE TREATMENT REGIMEN INCLUDED AN INITIAL DOSE OF 26() MG FOR PATIENTS WEIGHING 55 KG, 39
     Route: 058
  4. STELARA [Suspect]
     Active Substance: USTEKINUMAB
     Indication: Colitis ulcerative
     Route: 058
  5. ADALIMUMAB [Suspect]
     Active Substance: ADALIMUMAB
     Indication: Crohn^s disease
     Dosage: ADA DOSING COMMENCED WITH 160 MG AT WEEK O, 80 MG AT WEEK 2, 40 MG AT WEEK 4, AND SUBSEQUENTLY 40 MG
     Route: 065
  6. ADALIMUMAB [Suspect]
     Active Substance: ADALIMUMAB
     Indication: Colitis ulcerative
     Route: 065

REACTIONS (5)
  - Clostridium difficile infection [Unknown]
  - Cytomegalovirus colitis [Unknown]
  - Clostridial infection [Unknown]
  - Therapy non-responder [Unknown]
  - Off label use [Unknown]
